FAERS Safety Report 4267029-8 (Version None)
Quarter: 2004Q1

REPORT INFORMATION
  Report Type: 
  Country: None (occurrence: None)
  Receive Date: 20040107
  Receipt Date: 20031208
  Transmission Date: 20041129
  Serious: Yes (Life-Threatening)
  Sender: FDA-Public Use
  Company Number: BLOC000745

PATIENT
  Age: 11 Year
  Sex: Female
  Weight: 13 kg

DRUGS (3)
  1. NEUROBLOC (BOTULINUM TOXIN TYPE B) [Suspect]
     Indication: MUSCLE SPASTICITY
     Dosage: 9000 U INTRAMUSCULAR
     Route: 030
     Dates: start: 20030925, end: 20030925
  2. PRIMIDONE [Concomitant]
  3. SABRIL (VIGABATRIN) [Concomitant]

REACTIONS (2)
  - ASPIRATION [None]
  - EPILEPSY [None]
